FAERS Safety Report 7057185-0 (Version None)
Quarter: 2010Q4

REPORT INFORMATION
  Report Type: 
  Country: None (occurrence: None)
  Receive Date: 20101022
  Receipt Date: 20101015
  Transmission Date: 20110411
  Serious: Yes (Other)
  Sender: FDA-Public Use
  Company Number: JP-TYCO HEALTHCARE/MALLINCKRODT-T201002082

PATIENT
  Age: 66 Year
  Sex: Male
  Weight: 72 kg

DRUGS (13)
  1. OPTIRAY 350 [Suspect]
     Indication: HEPATIC EMBOLISATION
     Dosage: UNK, SINGLE
     Route: 013
     Dates: start: 20100914, end: 20100914
  2. ATROPINE SULFATE [Suspect]
     Indication: THERAPEUTIC EMBOLISATION
     Dosage: UNK
     Dates: start: 20100914, end: 20100914
  3. HYDROXYZINE HYDROCHLORIDE [Suspect]
     Indication: THERAPEUTIC EMBOLISATION
     Dosage: UNK
     Dates: start: 20100914, end: 20100914
  4. ALPROSTADIL [Suspect]
     Indication: THERAPEUTIC EMBOLISATION
     Dosage: UNK
     Dates: start: 20100914, end: 20100914
  5. CISPLATIN [Suspect]
     Indication: THERAPEUTIC EMBOLISATION
     Dosage: UNK
     Dates: start: 20100914, end: 20100914
  6. PENTAZOCINE LACTATE [Suspect]
     Indication: THERAPEUTIC EMBOLISATION
     Dosage: UNK
     Dates: start: 20100914, end: 20100914
  7. GRANISETRON HYDROCHLORIDE [Suspect]
     Indication: THERAPEUTIC EMBOLISATION
     Dosage: UNK
     Dates: start: 20100914, end: 20100914
  8. ETHYL ESTER OF IODINATED POPPY-SEED OIL FATTY ACID [Suspect]
     Indication: HEPATIC EMBOLISATION
  9. INSULIN ASPART [Concomitant]
     Dosage: UNK
  10. TELMISARTAN [Concomitant]
     Dosage: UNK
  11. BROTIZOLAM [Concomitant]
     Dosage: UNK
  12. LOXOPROFEN SODIUM [Concomitant]
     Dosage: UNK
  13. REBAMIPIDE [Concomitant]
     Dosage: UNK

REACTIONS (3)
  - DYSPNOEA [None]
  - LIP SWELLING [None]
  - RASH [None]
